FAERS Safety Report 5411382-6 (Version None)
Quarter: 2007Q3

REPORT INFORMATION
  Report Type: 
  Country: None (occurrence: None)
  Receive Date: 20070810
  Receipt Date: 20070808
  Transmission Date: 20080115
  Serious: Yes (Death)
  Sender: FDA-Public Use
  Company Number: US-ASTRAZENECA-2007UW19260

PATIENT
  Age: 83 Year
  Sex: Female
  Weight: 59 kg

DRUGS (1)
  1. ARIMIDEX [Suspect]
     Indication: LUNG NEOPLASM MALIGNANT
     Route: 048

REACTIONS (2)
  - LUNG NEOPLASM MALIGNANT [None]
  - OFF LABEL USE [None]
